FAERS Safety Report 22135080 (Version 2)
Quarter: 2023Q1

REPORT INFORMATION
  Report Type: Spontaneous
  Country: IN (occurrence: IN)
  Receive Date: 20230324
  Receipt Date: 20230328
  Transmission Date: 20230417
  Serious: Yes (Other)
  Sender: FDA-Public Use
  Company Number: IN-002147023-NVSC2023IN063263

PATIENT
  Sex: Male

DRUGS (2)
  1. NEORAL [Suspect]
     Active Substance: CYCLOSPORINE
     Indication: Bone marrow transplant
     Dosage: 2.5 MG/KG
     Route: 048
  2. NEORAL [Suspect]
     Active Substance: CYCLOSPORINE

REACTIONS (1)
  - Blood creatinine increased [Not Recovered/Not Resolved]
